FAERS Safety Report 7378892-6 (Version None)
Quarter: 2011Q1

REPORT INFORMATION
  Report Type: 
  Country: None (occurrence: None)
  Receive Date: 20110328
  Receipt Date: 20110323
  Transmission Date: 20110831
  Serious: Yes (Death, Hospitalization)
  Sender: FDA-Public Use
  Company Number: PHHY2011US19580

PATIENT
  Sex: Male
  Weight: 104 kg

DRUGS (12)
  1. PANTOPRAZOLE [Concomitant]
     Dosage: 40 MG, UNK
  2. VITAMIN D [Concomitant]
     Dosage: 1000 U, UNK
  3. LASIX [Concomitant]
     Dosage: 20 MG, UNK
  4. SPIRIVA [Concomitant]
  5. CALCIUM DOBESILATE [Concomitant]
  6. FLOVENT [Concomitant]
     Dosage: 110 UG, UNK
  7. COUMADIN [Concomitant]
     Dosage: 10 MG, UNK
  8. COMBIVENT                               /GFR/ [Concomitant]
  9. MIRAPEX [Concomitant]
     Dosage: 0.375 MG, UNK
  10. LOSARTAN POTASSIUM [Concomitant]
     Dosage: 100 MG, UNK
  11. TASIGNA [Suspect]
     Dosage: 150 MG, BID
     Route: 048
  12. SYNTHROID [Concomitant]
     Dosage: 112 UG, UNK

REACTIONS (3)
  - RESPIRATORY FAILURE [None]
  - HYPOXIA [None]
  - PNEUMONIA [None]
